FAERS Safety Report 17179736 (Version 2)
Quarter: 2020Q1

REPORT INFORMATION
  Report Type: Spontaneous
  Country: US (occurrence: US)
  Receive Date: 20191220
  Receipt Date: 20200118
  Transmission Date: 20200409
  Serious: No
  Sender: FDA-Public Use
  Company Number: US-ASTRAZENECA-2019SF69829

PATIENT
  Age: 50 Year
  Sex: Female
  Weight: 99.8 kg

DRUGS (4)
  1. RESCUE INHALER [Concomitant]
  2. OTC ZYRTEC [Concomitant]
  3. SINGULAIR [Concomitant]
     Active Substance: MONTELUKAST SODIUM
  4. SYMBICORT [Suspect]
     Active Substance: BUDESONIDE\FORMOTEROL FUMARATE DIHYDRATE
     Indication: ASTHMA
     Dosage: 120 INHALATIONS 160/4.5 MCG
     Route: 055
     Dates: start: 2014

REACTIONS (4)
  - Device issue [Unknown]
  - Asthma [Recovered/Resolved]
  - Wheezing [Recovered/Resolved]
  - Respiratory tract congestion [Recovered/Resolved]
